FAERS Safety Report 18376631 (Version 2)
Quarter: 2020Q4

REPORT INFORMATION
  Report Type: Spontaneous
  Country: ID (occurrence: ID)
  Receive Date: 20201013
  Receipt Date: 20201015
  Transmission Date: 20210114
  Serious: Yes (Other)
  Sender: FDA-Public Use
  Company Number: ID-JNJFOC-20201008341

PATIENT
  Age: 78 Year
  Sex: Male

DRUGS (8)
  1. AMLODIPINE [Concomitant]
     Active Substance: AMLODIPINE BESYLATE
     Dosage: 5 MG
  2. RIVAROXABAN [Suspect]
     Active Substance: RIVAROXABAN
     Indication: TRANSIENT ISCHAEMIC ATTACK
     Dosage: XARELTO 10 MG
     Route: 048
  3. FUROSEMIDE. [Concomitant]
     Active Substance: FUROSEMIDE
     Dosage: 40 MG
  4. BISOPROLOL [Concomitant]
     Active Substance: BISOPROLOL
  5. CLOPIDOGREL [Concomitant]
     Active Substance: CLOPIDOGREL BISULFATE
  6. CANDESARTAN. [Concomitant]
     Active Substance: CANDESARTAN
     Dosage: 6 MG
  7. ATORVASTATIN [Concomitant]
     Active Substance: ATORVASTATIN
  8. RIVAROXABAN [Suspect]
     Active Substance: RIVAROXABAN
     Dosage: XARELTO 15 MG
     Route: 048

REACTIONS (7)
  - Clumsiness [Recovering/Resolving]
  - Balance disorder [Recovering/Resolving]
  - Transient ischaemic attack [Recovering/Resolving]
  - Facial paralysis [Recovering/Resolving]
  - Speech disorder [Recovering/Resolving]
  - Off label use [Recovering/Resolving]
  - Dysphagia [Recovering/Resolving]

NARRATIVE: CASE EVENT DATE: 2020
